FAERS Safety Report 17025399 (Version 1)
Quarter: 2019Q4

REPORT INFORMATION
  Report Type: Spontaneous
  Country: JP (occurrence: JP)
  Receive Date: 20191113
  Receipt Date: 20191113
  Transmission Date: 20200122
  Serious: Yes (Other)
  Sender: FDA-Public Use
  Company Number: JP-PFIZER INC-2019483053

PATIENT

DRUGS (2)
  1. RHEUMATREX [Suspect]
     Active Substance: METHOTREXATE SODIUM
  2. FOLIAMIN [Concomitant]
     Active Substance: FOLIC ACID

REACTIONS (2)
  - Rheumatoid arthritis [Unknown]
  - Therapeutic response decreased [Unknown]
